FAERS Safety Report 21588881 (Version 1)
Quarter: 2022Q4

REPORT INFORMATION
  Report Type: Spontaneous
  Country: US (occurrence: US)
  Receive Date: 20221114
  Receipt Date: 20221114
  Transmission Date: 20230113
  Serious: Yes (Hospitalization, Other)
  Sender: FDA-Public Use
  Company Number: US-JNJFOC-20190325179

PATIENT

DRUGS (2)
  1. IMBRUVICA [Suspect]
     Active Substance: IBRUTINIB
     Indication: Chronic lymphocytic leukaemia refractory
     Dosage: DOSAGE FORM: UNSPECIFIED, STARTING CYCLE 2 DAY 1
     Route: 048
  2. NIVOLUMAB [Suspect]
     Active Substance: NIVOLUMAB
     Indication: Chronic lymphocytic leukaemia refractory
     Dosage: DOSAGE FORM: UNSPECIFIED, 3 MG/KG IV EVERY 2 WEEKS, STARTING CYCLE 1 DAY 1 FOR A TOTAL OF 24 CYCLES
     Route: 065

REACTIONS (14)
  - Amylase increased [Unknown]
  - Pneumonia [Unknown]
  - Lipase increased [Unknown]
  - Hypertransaminasaemia [Unknown]
  - Uveitis [Unknown]
  - Pneumonitis [Unknown]
  - Infusion related reaction [Unknown]
  - Diarrhoea [Unknown]
  - Increased tendency to bruise [Unknown]
  - Vomiting [Unknown]
  - Atrial fibrillation [Unknown]
  - Myalgia [Unknown]
  - Rash [Unknown]
  - Arthralgia [Unknown]
